FAERS Safety Report 6267532-5 (Version None)
Quarter: 2009Q3

REPORT INFORMATION
  Report Type: 
  Country: None (occurrence: None)
  Receive Date: 20090714
  Receipt Date: 20090701
  Transmission Date: 20100115
  Serious: Yes (Other)
  Sender: FDA-Public Use
  Company Number: PHHY2009US28534

PATIENT
  Sex: Female

DRUGS (1)
  1. TEGRETOL [Suspect]
     Indication: GRAND MAL CONVULSION
     Dosage: UNK
     Dates: start: 20090501

REACTIONS (3)
  - MULTIPLE SCLEROSIS [None]
  - MUSCULOSKELETAL STIFFNESS [None]
  - VISUAL IMPAIRMENT [None]
